FAERS Safety Report 21340010 (Version 2)
Quarter: 2022Q4

REPORT INFORMATION
  Report Type: Report from Study
  Country: BR (occurrence: BR)
  Receive Date: 20220915
  Receipt Date: 20221005
  Transmission Date: 20230113
  Serious: Yes (Other)
  Sender: FDA-Public Use
  Company Number: BR-JNJFOC-20220830755

PATIENT
  Age: 42 Year
  Sex: Female
  Weight: 118 kg

DRUGS (1)
  1. REMICADE [Suspect]
     Active Substance: INFLIXIMAB
     Indication: Ankylosing spondylitis
     Dosage: 0,2, 6 AND EACH 8 WEEKS
     Route: 041
     Dates: start: 20220616

REACTIONS (6)
  - Dyspnoea [Unknown]
  - Spinal pain [Unknown]
  - Peripheral swelling [Not Recovered/Not Resolved]
  - Musculoskeletal stiffness [Not Recovered/Not Resolved]
  - Hypersensitivity [Unknown]
  - Arthralgia [Unknown]
